FAERS Safety Report 17198837 (Version 1)
Quarter: 2019Q4

REPORT INFORMATION
  Report Type: Report from Study
  Country: US (occurrence: US)
  Receive Date: 20191225
  Receipt Date: 20191225
  Transmission Date: 20200122
  Serious: Yes (Other)
  Sender: FDA-Public Use
  Company Number: US-ROCHE-2505565

PATIENT
  Age: 19 Year
  Sex: Female
  Weight: 128.94 kg

DRUGS (3)
  1. OCREVUS [Suspect]
     Active Substance: OCRELIZUMAB
     Indication: RELAPSING-REMITTING MULTIPLE SCLEROSIS
     Dosage: THEN WILL RECEIVE 600 MG ONCE EVERY 6 MONTHS
     Route: 042
     Dates: start: 20191204
  2. NORTRIPTYLINE [Concomitant]
     Active Substance: NORTRIPTYLINE
     Indication: HEADACHE
     Dosage: TAKES DAILY AT NIGHT
     Route: 048
  3. VITAMIN D3 [Concomitant]
     Active Substance: CHOLECALCIFEROL
     Route: 048

REACTIONS (1)
  - Bronchitis [Recovering/Resolving]

NARRATIVE: CASE EVENT DATE: 20191211
